FAERS Safety Report 24059994 (Version 1)
Quarter: 2024Q3

REPORT INFORMATION
  Report Type: Spontaneous
  Country: GB (occurrence: GB)
  Receive Date: 20240708
  Receipt Date: 20240708
  Transmission Date: 20241017
  Serious: Yes (Life-Threatening, Hospitalization)
  Sender: ACCORD
  Company Number: GB-MLMSERVICE-20240626-PI103883-00270-1

PATIENT
  Age: 30 Year
  Sex: Female

DRUGS (2)
  1. MYCOPHENOLATE MOFETIL [Suspect]
     Active Substance: MYCOPHENOLATE MOFETIL
     Indication: Immunosuppressant drug therapy
  2. METHYLPREDNISOLONE [Suspect]
     Active Substance: METHYLPREDNISOLONE
     Indication: Immunosuppressant drug therapy
     Dosage: PULSED

REACTIONS (8)
  - Hypotension [Unknown]
  - Cardiomyopathy [Recovered/Resolved]
  - Myopericarditis [Recovered/Resolved]
  - Atrioventricular block complete [Recovered/Resolved]
  - Pericarditis [Recovered/Resolved]
  - Sepsis [Unknown]
  - Cardiac tamponade [Recovered/Resolved]
  - Meningitis pneumococcal [Unknown]
